FAERS Safety Report 9633241 (Version 3)
Quarter: 2013Q4

REPORT INFORMATION
  Report Type: Spontaneous
  Country: IT (occurrence: None)
  Receive Date: 20131017
  Receipt Date: 20131220
  Transmission Date: 20140711
  Serious: Yes (Hospitalization)
  Sender: FDA-Public Use
  Company Number: AUR-APL-2013-08613

PATIENT
  Age: 26 Year
  Sex: Female

DRUGS (5)
  1. OLANZAPINE (OLANZAPINE) [Suspect]
     Indication: PRODUCT USED FOR UNKNOWN INDICATION
     Dosage: 5 MG, 2 IN 1 D
     Route: 048
     Dates: start: 20130927, end: 20130927
  2. XANAX (ALPRAZOLAM) [Concomitant]
  3. TAVOR (LORAZEPAM) [Concomitant]
  4. AMISULPRIDE [Concomitant]
  5. SERTRALINE [Concomitant]

REACTIONS (4)
  - Muscle contractions involuntary [None]
  - Tremor [None]
  - Tongue disorder [None]
  - Tremor [None]
